FAERS Safety Report 10200177 (Version 1)
Quarter: 2014Q2

REPORT INFORMATION
  Report Type: Spontaneous
  Country: SE (occurrence: SE)
  Receive Date: 20140527
  Receipt Date: 20140527
  Transmission Date: 20141212
  Serious: Yes (Hospitalization, Other)
  Sender: FDA-Public Use
  Company Number: SE-MYLANLABS-2014S1011924

PATIENT
  Age: 80 Year
  Sex: Male

DRUGS (1)
  1. EPIPEN [Suspect]
     Indication: HYPERSENSITIVITY
     Dates: start: 20140512

REACTIONS (2)
  - Drug ineffective [Unknown]
  - Device failure [Unknown]
